FAERS Safety Report 20196226 (Version 1)
Quarter: 2021Q4

REPORT INFORMATION
  Report Type: Spontaneous
  Country: NO (occurrence: NO)
  Receive Date: 20211216
  Receipt Date: 20211216
  Transmission Date: 20220303
  Serious: Yes (Hospitalization, Other)
  Sender: FDA-Public Use
  Company Number: None

PATIENT
  Age: 73 Year
  Sex: Male

DRUGS (1)
  1. NEURONTIN [Suspect]
     Active Substance: GABAPENTIN
     Indication: Post herpetic neuralgia
     Dosage: EVERY 8 HOURS
     Route: 048
     Dates: start: 20211015, end: 20211123

REACTIONS (9)
  - Pericardial effusion [Recovering/Resolving]
  - Pleuropericarditis [Recovering/Resolving]
  - Pleural effusion [Recovering/Resolving]
  - Pericarditis [Recovering/Resolving]
  - Pericardial effusion [Recovering/Resolving]
  - Aortic valve incompetence [Unknown]
  - Liver disorder [Recovered/Resolved]
  - Gallbladder disorder [Unknown]
  - Left atrial dilatation [Unknown]

NARRATIVE: CASE EVENT DATE: 20211110
